FAERS Safety Report 8023978-6 (Version None)
Quarter: 2012Q1

REPORT INFORMATION
  Report Type: 
  Country: None (occurrence: None)
  Receive Date: 20120105
  Receipt Date: 20120101
  Transmission Date: 20120608
  Serious: No
  Sender: FDA-Public Use
  Company Number: US-B.I. PHARMACEUTICALS,INC./RIDGEFIELD-2012-BP-00062BP

PATIENT
  Sex: Female

DRUGS (9)
  1. LANTUS [Concomitant]
  2. OMEPRAZOLE [Concomitant]
     Indication: GASTROOESOPHAGEAL REFLUX DISEASE
     Dosage: 20 MG
     Route: 048
  3. MELOXICAM [Concomitant]
  4. PRADAXA [Suspect]
     Indication: ATRIAL FIBRILLATION
     Dosage: 300 MG
     Route: 048
     Dates: start: 20111201
  5. LIPITOR [Concomitant]
  6. ENALAPRIL MALEATE [Concomitant]
  7. CALCIUM CARBONATE [Concomitant]
     Indication: ABDOMINAL DISCOMFORT
  8. METFORMIN HCL [Concomitant]
  9. ZYLOPRIM [Concomitant]

REACTIONS (2)
  - ABDOMINAL DISCOMFORT [None]
  - CHEST DISCOMFORT [None]
